FAERS Safety Report 7893805 (Version 3)
Quarter: 2013Q4

REPORT INFORMATION
  Report Type: Report from Study
  Country: CA (occurrence: CA)
  Receive Date: 20110411
  Receipt Date: 20131105
  Transmission Date: 20140711
  Serious: Yes (Hospitalization)
  Sender: FDA-Public Use
  Company Number: CA-BRISTOL-MYERS SQUIBB COMPANY-15646821

PATIENT
  Age: 40 Year
  Sex: Male

DRUGS (9)
  1. IPILIMUMAB [Suspect]
     Indication: MALIGNANT MELANOMA
     Route: 042
     Dates: start: 20110211, end: 20110304
  2. PAMIDRONATE [Concomitant]
     Dates: start: 20110214
  3. RANITIDINE [Concomitant]
     Dates: start: 20110322
  4. SENOKOT [Concomitant]
     Dates: start: 20110303
  5. MAXERAN [Concomitant]
     Dates: start: 201103
  6. ONDANSETRON [Concomitant]
     Dates: start: 20110322
  7. ADVIL [Concomitant]
     Dates: start: 201101
  8. HYDROMORPHONE [Concomitant]
     Dates: start: 20110303
  9. RABEPRAZOLE [Concomitant]
     Dates: start: 20110303

REACTIONS (2)
  - Diarrhoea [Recovered/Resolved]
  - Vomiting [Recovered/Resolved]
